FAERS Safety Report 17450569 (Version 1)
Quarter: 2020Q1

REPORT INFORMATION
  Report Type: Spontaneous
  Country: TW (occurrence: TW)
  Receive Date: 20200224
  Receipt Date: 20200224
  Transmission Date: 20200409
  Serious: Yes (Hospitalization, Other)
  Sender: FDA-Public Use
  Company Number: TW-SCIEGEN PHARMACEUTICALS INC-2020SCILIT00051

PATIENT
  Age: 52 Year
  Sex: Female
  Weight: 39 kg

DRUGS (9)
  1. L-ARGININE [Interacting]
     Active Substance: ARGININE
  2. TACROLIMUS. [Concomitant]
     Active Substance: TACROLIMUS
  3. SIROLIMUS. [Concomitant]
     Active Substance: SIROLIMUS
  4. ACYCLOVIR. [Interacting]
     Active Substance: ACYCLOVIR
  5. METFORMIN HYDROCHLORIDETABLETS [Suspect]
     Active Substance: METFORMIN HYDROCHLORIDE
  6. GIMEPIRIDE [Concomitant]
  7. Q10 [Interacting]
     Active Substance: UBIDECARENONE
  8. SITAGLIPTIN [Concomitant]
     Active Substance: SITAGLIPTIN
  9. VALPROIC ACID. [Interacting]
     Active Substance: VALPROIC ACID

REACTIONS (3)
  - MELAS syndrome [Recovered/Resolved]
  - Acquired mitochondrial DNA mutation [Recovered/Resolved]
  - Mitochondrial toxicity [Recovered/Resolved]
